FAERS Safety Report 7788268-5 (Version None)
Quarter: 2011Q3

REPORT INFORMATION
  Report Type: 
  Country: None (occurrence: None)
  Receive Date: 20110929
  Receipt Date: 20110929
  Transmission Date: 20111222
  Serious: Yes (Life-Threatening, Hospitalization, Disabling)
  Sender: FDA-Public Use
  Company Number: None

PATIENT
  Sex: Female
  Weight: 66.8 kg

DRUGS (4)
  1. DILTIAZEM HCL [Concomitant]
  2. CITALOPRAM HYDROBROMIDE [Suspect]
     Indication: DEPRESSION
     Dosage: 60MG DAILY PO
     Route: 048
  3. RANEXA [Suspect]
     Indication: ANGINA PECTORIS
     Dosage: 500MG TWICE DAILY PO
     Route: 048
  4. RANEXA [Suspect]
     Indication: CORONARY ARTERY DISEASE
     Dosage: 500MG TWICE DAILY PO
     Route: 048

REACTIONS (2)
  - CARDIAC ARREST [None]
  - ELECTROCARDIOGRAM QT PROLONGED [None]
